FAERS Safety Report 24810384 (Version 1)
Quarter: 2025Q1

REPORT INFORMATION
  Report Type: Spontaneous
  Country: US (occurrence: US)
  Receive Date: 20250106
  Receipt Date: 20250106
  Transmission Date: 20250409
  Serious: Yes (Life-Threatening, Hospitalization)
  Sender: MYLAN
  Company Number: US-MYLANLABS-2024M1116850

PATIENT
  Sex: Male

DRUGS (8)
  1. DIPHENHYDRAMINE [Suspect]
     Active Substance: DIPHENHYDRAMINE
     Indication: Product used for unknown indication
     Route: 048
     Dates: start: 202202
  2. NOREPINEPHRINE [Suspect]
     Active Substance: NOREPINEPHRINE
     Indication: Hypotension
     Route: 065
     Dates: start: 202202, end: 202202
  3. NOREPINEPHRINE [Suspect]
     Active Substance: NOREPINEPHRINE
     Route: 065
     Dates: start: 202202
  4. IBUPROFEN [Suspect]
     Active Substance: IBUPROFEN
     Indication: Overdose
     Route: 048
     Dates: start: 202202
  5. DOPAMINE [Suspect]
     Active Substance: DOPAMINE HYDROCHLORIDE
     Indication: Hypotension
     Route: 065
     Dates: start: 202202
  6. VASOPRESSIN [Suspect]
     Active Substance: VASOPRESSIN
     Indication: Hypotension
     Route: 065
     Dates: start: 202202
  7. SODIUM BICARBONATE [Suspect]
     Active Substance: SODIUM BICARBONATE
     Indication: Respiratory acidosis
     Route: 065
     Dates: start: 202202
  8. SODIUM BICARBONATE [Suspect]
     Active Substance: SODIUM BICARBONATE
     Indication: Metabolic acidosis

REACTIONS (11)
  - Coma [Unknown]
  - Hypotension [Unknown]
  - Acute respiratory distress syndrome [Recovering/Resolving]
  - Aspiration [Unknown]
  - Respiratory acidosis [Recovering/Resolving]
  - Metabolic acidosis [Recovering/Resolving]
  - Hyperkalaemia [Unknown]
  - Renal failure [Unknown]
  - Overdose [Unknown]
  - Drug ineffective [Unknown]
  - Cardiac arrest [Recovered/Resolved]

NARRATIVE: CASE EVENT DATE: 20220201
